FAERS Safety Report 5981113-X (Version None)
Quarter: 2008Q4

REPORT INFORMATION
  Report Type: 
  Country: None (occurrence: None)
  Receive Date: 20081202
  Receipt Date: 20081202
  Transmission Date: 20090506
  Serious: Yes (Other)
  Sender: FDA-Public Use
  Company Number: None

PATIENT
  Age: 56 Year
  Sex: Female
  Weight: 65.7716 kg

DRUGS (6)
  1. BENAZEPRIL HYDROCHLORIDE [Suspect]
     Indication: OPTIC NERVE DISORDER
     Dosage: 1 TABLET DAILY PO
     Route: 048
     Dates: start: 20070915, end: 20080415
  2. BENAZEPRIL HYDROCHLORIDE [Suspect]
     Indication: SWELLING
     Dosage: 1 TABLET DAILY PO
     Route: 048
     Dates: start: 20070915, end: 20080415
  3. BENAZEPRIL HYDROCHLORIDE [Suspect]
     Indication: VISUAL ACUITY REDUCED
     Dosage: 1 TABLET DAILY PO
     Route: 048
     Dates: start: 20070915, end: 20080415
  4. BENAZEPRIL HYDROCHLORIDE [Suspect]
     Indication: OPTIC NERVE DISORDER
     Dosage: 1 TABLET DAILY PO
     Route: 048
     Dates: start: 20070915, end: 20080415
  5. BENAZEPRIL HYDROCHLORIDE [Suspect]
     Indication: SWELLING
     Dosage: 1 TABLET DAILY PO
     Route: 048
     Dates: start: 20070915, end: 20080415
  6. BENAZEPRIL HYDROCHLORIDE [Suspect]
     Indication: VISUAL ACUITY REDUCED
     Dosage: 1 TABLET DAILY PO
     Route: 048
     Dates: start: 20070915, end: 20080415

REACTIONS (6)
  - BLOOD PRESSURE DECREASED [None]
  - CHEST PAIN [None]
  - CONCUSSION [None]
  - FACIAL BONES FRACTURE [None]
  - FALL [None]
  - LOSS OF CONSCIOUSNESS [None]
